FAERS Safety Report 24738592 (Version 1)
Quarter: 2024Q4

REPORT INFORMATION
  Report Type: Spontaneous
  Country: US (occurrence: US)
  Receive Date: 20241216
  Receipt Date: 20241216
  Transmission Date: 20250115
  Serious: No
  Sender: ALVOGEN
  Company Number: US-ALVOGEN-2023092815

PATIENT
  Sex: Female

DRUGS (4)
  1. FENTANYL [Suspect]
     Active Substance: FENTANYL
     Indication: Pain
     Dosage: EXPIRATION DATE: UU-AUG-2026; TWO PATCHES OF 100MCG/HR EVERY TWO DAYS TO MAKE IT UP TO 200 MCG/H.
     Route: 062
  2. FENTANYL [Suspect]
     Active Substance: FENTANYL
     Indication: Pain
     Dosage: STRENGTH: 25 MCG/H
     Route: 062
  3. FENTANYL [Suspect]
     Active Substance: FENTANYL
     Indication: Pain
     Dosage: STRENGTH: 50 MCG/H
     Route: 062
  4. FENTANYL [Suspect]
     Active Substance: FENTANYL
     Indication: Pain
     Dosage: STRENGTH: 100 MCG/H
     Route: 062

REACTIONS (1)
  - Product availability issue [Unknown]
